FAERS Safety Report 6158359-3 (Version None)
Quarter: 2009Q2

REPORT INFORMATION
  Report Type: 
  Country: None (occurrence: None)
  Receive Date: 20090417
  Receipt Date: 20090406
  Transmission Date: 20091009
  Serious: Yes (Hospitalization, Other)
  Sender: FDA-Public Use
  Company Number: FR-NOVOPROD-268490

PATIENT
  Age: 41 Year
  Sex: Male
  Weight: 90 kg

DRUGS (3)
  1. NORDITROPIN [Suspect]
     Indication: GROWTH HORMONE DEFICIENCY
     Dosage: .2 MG, QD
     Route: 058
     Dates: start: 20030526, end: 20070628
  2. NORDITROPIN [Suspect]
     Dosage: .2 MG, QD
     Route: 058
  3. ANDROTARDYL [Concomitant]
     Dosage: 8.3 MG, QD
     Route: 058
     Dates: start: 19990810

REACTIONS (1)
  - PITUITARY TUMOUR RECURRENT [None]
